FAERS Safety Report 5146883-1 (Version None)
Quarter: 2006Q4

REPORT INFORMATION
  Report Type: 
  Country: None (occurrence: None)
  Receive Date: 20061109
  Receipt Date: 20061102
  Transmission Date: 20070319
  Serious: Yes (Death, Life-Threatening, Hospitalization)
  Sender: FDA-Public Use
  Company Number: JP-JPN-A200604731

PATIENT
  Age: 54 Year
  Sex: Female
  Weight: 48 kg

DRUGS (10)
  1. ALKERAN [Suspect]
     Indication: ALLOGENIC BONE MARROW TRANSPLANTATION THERAPY
     Route: 042
     Dates: start: 20050115, end: 20050116
  2. FLUDARABINE PHOSPHATE [Concomitant]
     Indication: ALLOGENIC BONE MARROW TRANSPLANTATION THERAPY
     Route: 042
     Dates: start: 20050112, end: 20050116
  3. TACROLIMUS HYDRATE [Concomitant]
     Indication: IMMUNOSUPPRESSANT DRUG THERAPY
     Route: 065
     Dates: start: 20050117, end: 20050202
  4. METHOTREXATE [Concomitant]
     Indication: IMMUNOSUPPRESSANT DRUG THERAPY
     Route: 065
     Dates: start: 20050119, end: 20050124
  5. FAMOTIDINE [Concomitant]
     Route: 048
     Dates: start: 20050109, end: 20050202
  6. ALLOPURINOL [Concomitant]
     Route: 048
     Dates: start: 20050109, end: 20050202
  7. LEVOFLOXACIN [Concomitant]
     Route: 048
     Dates: start: 20050111, end: 20050211
  8. DIFLUCAN [Concomitant]
     Route: 048
     Dates: start: 20050111, end: 20050211
  9. MODACIN [Concomitant]
     Route: 042
     Dates: start: 20050121, end: 20050124
  10. MEROPEN [Concomitant]
     Route: 042
     Dates: start: 20050125, end: 20050202

REACTIONS (2)
  - JAUNDICE [None]
  - RENAL FAILURE [None]
